FAERS Safety Report 21289903 (Version 1)
Quarter: 2022Q3

REPORT INFORMATION
  Report Type: Spontaneous
  Country: US (occurrence: US)
  Receive Date: 20220902
  Receipt Date: 20220902
  Transmission Date: 20221027
  Serious: No
  Sender: FDA-Public Use
  Company Number: US-KARYOPHARM-2022KPT000944

PATIENT

DRUGS (16)
  1. XPOVIO [Suspect]
     Active Substance: SELINEXOR
     Indication: Plasma cell myeloma
     Dosage: 100 MG, WEEKLY
     Route: 048
     Dates: start: 20220808
  2. ACYCLOVIR ABBOTT VIAL [Concomitant]
  3. DEXAMETHASONE [Concomitant]
     Active Substance: DEXAMETHASONE
  4. MELATONIN [Concomitant]
     Active Substance: MELATONIN
  5. DULOXETINE [Concomitant]
     Active Substance: DULOXETINE
  6. ELIQUIS [Concomitant]
     Active Substance: APIXABAN
  7. LEVETIRACETAM [Concomitant]
     Active Substance: LEVETIRACETAM
  8. METOPROLOL TARTRATE [Concomitant]
     Active Substance: METOPROLOL TARTRATE
  9. MIRTAZAPINE [Concomitant]
     Active Substance: MIRTAZAPINE
  10. NALOXONE [Concomitant]
     Active Substance: NALOXONE
  11. NYSTATIN [Concomitant]
     Active Substance: NYSTATIN
  12. OLANZAPINE [Concomitant]
     Active Substance: OLANZAPINE
  13. ONDANSETRON [Concomitant]
     Active Substance: ONDANSETRON
  14. PREGABALIN [Concomitant]
     Active Substance: PREGABALIN
  15. PROCHLORPERAZINE MALEATE [Concomitant]
     Active Substance: PROCHLORPERAZINE MALEATE
  16. VARUBI [ROLAPITANT] [Concomitant]

REACTIONS (3)
  - Diarrhoea [Recovered/Resolved]
  - Decreased appetite [Unknown]
  - Nausea [Recovered/Resolved]

NARRATIVE: CASE EVENT DATE: 20220801
